FAERS Safety Report 8927328 (Version 1)
Quarter: 2012Q4

REPORT INFORMATION
  Report Type: 
  Country: FR (occurrence: FR)
  Receive Date: 20121127
  Receipt Date: 20121127
  Transmission Date: 20130627
  Serious: Yes (Death, Life-Threatening, Hospitalization, Other)
  Sender: FDA-Public Use
  Company Number: FR-ASTRAZENECA-2012SE89056

PATIENT
  Age: 16252 Day
  Sex: Male

DRUGS (4)
  1. XEROQUEL [Suspect]
     Indication: SCHIZOAFFECTIVE DISORDER
     Route: 048
     Dates: start: 201206, end: 201208
  2. XEROQUEL [Suspect]
     Indication: SCHIZOAFFECTIVE DISORDER
     Route: 048
     Dates: start: 201208
  3. XEROQUEL [Suspect]
     Indication: SCHIZOAFFECTIVE DISORDER
     Route: 048
     Dates: start: 20121115, end: 20121115
  4. LOXAPAC [Suspect]
     Indication: AGITATION
     Route: 030
     Dates: start: 20121116, end: 20121116

REACTIONS (11)
  - Respiratory distress [Recovered/Resolved]
  - Disturbance in attention [Recovered/Resolved]
  - Agitation [Unknown]
  - Coma [Fatal]
  - Cardio-respiratory arrest [Fatal]
  - Sudden cardiac death [Fatal]
  - Oxygen saturation decreased [Unknown]
  - Circumstance or information capable of leading to medication error [Recovered/Resolved]
  - Intentional drug misuse [Unknown]
  - Somnolence [Recovered/Resolved]
  - Somnolence [Unknown]
